FAERS Safety Report 5289099-0 (Version None)
Quarter: 2007Q1

REPORT INFORMATION
  Report Type: 
  Country: None (occurrence: None)
  Receive Date: 20070124
  Receipt Date: 20060601
  Transmission Date: 20070707
  Serious: Yes (Hospitalization)
  Sender: FDA-Public Use
  Company Number: US200606001037

PATIENT
  Age: 84 Year
  Sex: Female

DRUGS (5)
  1. FORTEO [Suspect]
     Indication: OSTEOPOROSIS
     Dates: start: 20060315, end: 20060601
  2. TOPROL-XL [Concomitant]
  3. ISOSORBIDE (ISOSORBIDE) [Concomitant]
  4. AVAPRO [Concomitant]
  5. FORTEO [Concomitant]

REACTIONS (1)
  - HYPERTENSION [None]
